FAERS Safety Report 4608451-7 (Version None)
Quarter: 2005Q1

REPORT INFORMATION
  Report Type: 
  Country: None (occurrence: None)
  Receive Date: 20050311
  Receipt Date: 20050223
  Transmission Date: 20050727
  Serious: Yes (Death)
  Sender: FDA-Public Use
  Company Number: 2005-DE-00720GD

PATIENT
  Sex: Female

DRUGS (1)
  1. NEVIRAPINE (VENIRAPINE) (NR) (NEVIRAPINE) [Suspect]
     Indication: HIV INFECTION

REACTIONS (1)
  - HEPATITIS FULMINANT [None]
